FAERS Safety Report 18269190 (Version 1)
Quarter: 2020Q3

REPORT INFORMATION
  Report Type: Spontaneous
  Country: FR (occurrence: FR)
  Receive Date: 20200915
  Receipt Date: 20200915
  Transmission Date: 20201103
  Serious: Yes (Hospitalization)
  Sender: FDA-Public Use
  Company Number: FR-JAZZ-2019-FR-014501

PATIENT

DRUGS (8)
  1. METHYLPREDNISOLONE. [Suspect]
     Active Substance: METHYLPREDNISOLONE
     Indication: NON-HODGKIN^S LYMPHOMA
     Dosage: 40 MG, UNKNOWN FREQUENCY
     Route: 037
     Dates: start: 20160304, end: 20160304
  2. PREDNISOLONE ACETATE. [Suspect]
     Active Substance: PREDNISOLONE ACETATE
     Indication: NON-HODGKIN^S LYMPHOMA
     Dosage: 100 MG, UNKNOWN FREQUENCY
     Route: 042
     Dates: start: 20160311, end: 20160325
  3. VINCRISTINE SULFATE. [Suspect]
     Active Substance: VINCRISTINE SULFATE
     Indication: NON-HODGKIN^S LYMPHOMA
     Dosage: 2 MG, UNKNOWN FREQUENCY
     Route: 042
     Dates: start: 20160311, end: 20160401
  4. CERUBIDINE [Suspect]
     Active Substance: DAUNORUBICIN HYDROCHLORIDE
     Indication: NON-HODGKIN^S LYMPHOMA
     Dosage: 87.5 MG, UNKNOWN FREQUENCY
     Route: 042
     Dates: start: 20160311, end: 20160328
  5. CYCLOPHOSPHAMIDE. [Suspect]
     Active Substance: CYCLOPHOSPHAMIDE
     Indication: NON-HODGKIN^S LYMPHOMA
     Dosage: 1320 MG, UNKNOWN FREQUENCY
     Route: 041
     Dates: start: 20160311, end: 20160328
  6. CYTARABINE SANDOZ [Suspect]
     Active Substance: CYTARABINE
     Indication: NON-HODGKIN^S LYMPHOMA
     Dosage: 40 MG, UNKNOWN FREQUENCY
     Route: 037
     Dates: start: 20160304, end: 20160304
  7. KIDROLASE [Suspect]
     Active Substance: ASPARAGINASE
     Indication: NON-HODGKIN^S LYMPHOMA
     Dosage: 10560 IU, UNKNOWN FREQUENCY
     Route: 042
     Dates: start: 20160311, end: 20160407
  8. METHOTREXATE. [Suspect]
     Active Substance: METHOTREXATE
     Indication: NON-HODGKIN^S LYMPHOMA
     Dosage: 15 MG, UNKNOWN FREQUENCY
     Route: 037
     Dates: start: 20160304, end: 20160304

REACTIONS (1)
  - Hyponatraemia [Recovered/Resolved]

NARRATIVE: CASE EVENT DATE: 20160330
